FAERS Safety Report 4915321-3 (Version None)
Quarter: 2006Q1

REPORT INFORMATION
  Report Type: 
  Country: None (occurrence: None)
  Receive Date: 20060217
  Receipt Date: 20060210
  Transmission Date: 20060701
  Serious: Yes (Disabling)
  Sender: FDA-Public Use
  Company Number: JP-JPN-A200600555

PATIENT
  Age: 66 Year
  Sex: Female

DRUGS (3)
  1. RELENZA [Suspect]
     Indication: INFLUENZA
     Dosage: 10MG TWICE PER DAY
     Route: 055
     Dates: start: 20060128, end: 20060129
  2. NAUZELIN [Concomitant]
     Dosage: 2TAB THREE TIMES PER DAY
     Route: 048
  3. MEDICON [Concomitant]
     Dosage: 2TAB THREE TIMES PER DAY
     Route: 048

REACTIONS (1)
  - PAROSMIA [None]
